FAERS Safety Report 9431579 (Version 6)
Quarter: 2014Q1

REPORT INFORMATION
  Report Type: Spontaneous
  Country: US (occurrence: US)
  Receive Date: 20130731
  Receipt Date: 20140124
  Transmission Date: 20141002
  Serious: No
  Sender: FDA-Public Use
  Company Number: US-009507513-1307USA014636

PATIENT
  Age: 53 Year
  Sex: Male
  Weight: 68.27 kg

DRUGS (6)
  1. PEG-INTRON [Suspect]
     Indication: HEPATITIS C
     Dosage: REDIPEN, 0.4 ML (96 MCG) ONCE WEEKLY
     Route: 058
     Dates: start: 20130712, end: 20131221
  2. RIBAPAK [Suspect]
     Indication: HEPATITIS C
     Dosage: 600MG/400MG, BID
     Route: 048
     Dates: start: 20130712, end: 20131227
  3. ZOLOFT [Concomitant]
     Dosage: 1-1.5 TABLETS
     Route: 048
  4. ASCORBIC ACID [Concomitant]
     Dosage: UNKNOWN
  5. CYANOCOBALAMIN [Concomitant]
     Dosage: CONTROLLED RELEASE (CR)
  6. MIRTAZAPINE [Concomitant]

REACTIONS (11)
  - Stress [Recovering/Resolving]
  - Injection site erythema [Unknown]
  - Ocular hyperaemia [Unknown]
  - Injection site erythema [Unknown]
  - Insomnia [Unknown]
  - Hypoaesthesia oral [Unknown]
  - Glossodynia [Unknown]
  - Ocular hyperaemia [Unknown]
  - Injection site erythema [Unknown]
  - Distractibility [Unknown]
  - Glossodynia [Unknown]
